FAERS Safety Report 12798635 (Version 2)
Quarter: 2016Q4

REPORT INFORMATION
  Report Type: Spontaneous
  Country: BR (occurrence: BR)
  Receive Date: 20160930
  Receipt Date: 20161011
  Transmission Date: 20170207
  Serious: Yes (Other)
  Sender: FDA-Public Use
  Company Number: BR-009507513-1609BRA012250

PATIENT
  Sex: Female

DRUGS (2)
  1. NUVARING [Suspect]
     Active Substance: ETHINYL ESTRADIOL\ETONOGESTREL
     Dosage: DOSE: VAGINAL RING
     Route: 067
     Dates: start: 20160912
  2. NUVARING [Suspect]
     Active Substance: ETHINYL ESTRADIOL\ETONOGESTREL
     Dosage: DOSE: A VAGINAL RING
     Route: 067
     Dates: start: 201603

REACTIONS (4)
  - Vulvovaginal injury [Unknown]
  - Vaginal discharge [Unknown]
  - Product quality issue [Unknown]
  - Device breakage [Unknown]

NARRATIVE: CASE EVENT DATE: 20160918
